FAERS Safety Report 4831970-5 (Version None)
Quarter: 2005Q4

REPORT INFORMATION
  Report Type: 
  Country: None (occurrence: None)
  Receive Date: 20051116
  Receipt Date: 20051031
  Transmission Date: 20060501
  Serious: Yes (Life-Threatening)
  Sender: FDA-Public Use
  Company Number: ADE05007-L

PATIENT

DRUGS (4)
  1. CYCLOSPORINE [Suspect]
     Indication: IMMUNOSUPPRESSANT DRUG THERAPY
     Dates: start: 19980101, end: 20000101
  2. RATG INDUCTION [Concomitant]
  3. MYCOPHENOLATE MOFETIL [Concomitant]
  4. SHORT-TERM CORTICOSTEROIDS [Concomitant]

REACTIONS (1)
  - CARDIOVASCULAR DISORDER [None]
